FAERS Safety Report 8450207-1 (Version None)
Quarter: 2012Q2

REPORT INFORMATION
  Report Type: 
  Country: None (occurrence: None)
  Receive Date: 20120614
  Receipt Date: 20120614
  Transmission Date: 20120825
  Serious: Yes (Other)
  Sender: FDA-Public Use
  Company Number: None

PATIENT
  Sex: Female

DRUGS (4)
  1. PROPRANOLOL [Concomitant]
  2. NAPROXEN [Suspect]
     Indication: PAIN IN EXTREMITY
     Dosage: 500 MG TWICE A DAY PO
     Route: 048
     Dates: start: 20120604, end: 20120607
  3. NAPROXEN [Suspect]
     Indication: ARTHRALGIA
     Dosage: 500 MG TWICE A DAY PO
     Route: 048
     Dates: start: 20120604, end: 20120607
  4. NAPROXEN [Suspect]
     Indication: ARTHRITIS
     Dosage: 500 MG TWICE A DAY PO
     Route: 048
     Dates: start: 20120604, end: 20120607

REACTIONS (5)
  - VOMITING [None]
  - NAUSEA [None]
  - DIZZINESS [None]
  - HEADACHE [None]
  - MUSCULOSKELETAL STIFFNESS [None]
